FAERS Safety Report 5900503-4 (Version None)
Quarter: 2008Q3

REPORT INFORMATION
  Report Type: 
  Country: None (occurrence: None)
  Receive Date: 20080926
  Receipt Date: 20080915
  Transmission Date: 20090109
  Serious: Yes (Other)
  Sender: FDA-Public Use
  Company Number: US-PFIZER INC-2008066115

PATIENT
  Sex: Female

DRUGS (3)
  1. CHANTIX [Suspect]
     Indication: SMOKING CESSATION THERAPY
     Route: 048
     Dates: start: 20080722, end: 20080722
  2. WELLBUTRIN [Suspect]
     Dates: start: 20080701
  3. CLONAZEPAM [Concomitant]
     Indication: ANXIETY

REACTIONS (1)
  - THROAT TIGHTNESS [None]
